FAERS Safety Report 10058388 (Version 5)
Quarter: 2015Q1

REPORT INFORMATION
  Report Type: Report from Study
  Country: CA (occurrence: CA)
  Receive Date: 20140404
  Receipt Date: 20150212
  Transmission Date: 20150720
  Serious: Yes (Death, Hospitalization, Other)
  Sender: FDA-Public Use
  Company Number: PHHY2014CA011044

PATIENT
  Age: 74 Year
  Sex: Male

DRUGS (3)
  1. COUMADIN [Concomitant]
     Active Substance: WARFARIN SODIUM
     Indication: PRODUCT USED FOR UNKNOWN INDICATION
     Dosage: 4-5 MG, DAILY (ALTERNATING 4 MG AND 5 MG)
     Route: 065
  2. SANDOSTATIN [Suspect]
     Active Substance: OCTREOTIDE ACETATE
     Indication: SMALL INTESTINAL HAEMORRHAGE
     Dosage: UNK
     Route: 058
     Dates: start: 20140122
  3. SANDOSTATIN LAR DEPOT [Suspect]
     Active Substance: OCTREOTIDE ACETATE
     Indication: SMALL INTESTINAL HAEMORRHAGE
     Dosage: 20 MG, ONCE A MONTH
     Route: 030
     Dates: start: 20140206

REACTIONS (9)
  - Dysuria [Unknown]
  - Hemiplegia [Unknown]
  - Epistaxis [Recovered/Resolved]
  - Product use issue [Unknown]
  - Death [Fatal]
  - Limb discomfort [Unknown]
  - Injection site bruising [Unknown]
  - Injection site pain [Unknown]
  - Injection site mass [Unknown]

NARRATIVE: CASE EVENT DATE: 20140603
